FAERS Safety Report 9548417 (Version 1)
Quarter: 2013Q2

REPORT INFORMATION
  Report Type: Spontaneous
  Country: US (occurrence: None)
  Receive Date: 20130627
  Receipt Date: 20130627
  Transmission Date: 20140414
  Serious: No
  Sender: FDA-Public Use
  Company Number: 1000044737

PATIENT
  Age: 92 Year
  Sex: Male

DRUGS (1)
  1. LINZESS (LINACLOTIDE) (CAPSULES) [Suspect]
     Indication: CONSTIPATION
     Route: 048
     Dates: start: 2012, end: 2012

REACTIONS (3)
  - Nausea [None]
  - Diarrhoea [None]
  - Abdominal discomfort [None]
